FAERS Safety Report 12710305 (Version 1)
Quarter: 2016Q3

REPORT INFORMATION
  Report Type: Spontaneous
  Country: BR (occurrence: BR)
  Receive Date: 20160902
  Receipt Date: 20160902
  Transmission Date: 20161109
  Serious: Yes (Life-Threatening, Hospitalization, Other)
  Sender: FDA-Public Use
  Company Number: BR-PFIZER INC-2016403886

PATIENT
  Age: 55 Year
  Sex: Male
  Weight: 87 kg

DRUGS (6)
  1. RITMONORM [Concomitant]
     Active Substance: PROPAFENONE HYDROCHLORIDE
     Route: 048
  2. SELOZOK [Concomitant]
     Active Substance: METOPROLOL SUCCINATE
     Route: 048
  3. ELIQUIS [Suspect]
     Active Substance: APIXABAN
     Dosage: UNK
     Route: 065
     Dates: start: 201604
  4. NAPRIX [Concomitant]
     Active Substance: RAMIPRIL
     Route: 048
  5. SPIRONOLACTONE. [Suspect]
     Active Substance: SPIRONOLACTONE
     Dosage: UNK
     Route: 048
  6. ANCORON [Concomitant]
     Active Substance: AMIODARONE HYDROCHLORIDE
     Route: 048

REACTIONS (3)
  - Weight decreased [Not Recovered/Not Resolved]
  - Myocardial infarction [Recovered/Resolved]
  - Arrhythmia [Recovered/Resolved]
